FAERS Safety Report 6638103-3 (Version None)
Quarter: 2010Q1

REPORT INFORMATION
  Report Type: 
  Country: None (occurrence: None)
  Receive Date: 20100312
  Receipt Date: 20100303
  Transmission Date: 20100710
  Serious: Yes (Other)
  Sender: FDA-Public Use
  Company Number: 2010SP013235

PATIENT
  Age: 18 Year
  Sex: Female
  Weight: 84.8226 kg

DRUGS (1)
  1. IMPLANON [Suspect]
     Indication: DRUG USE FOR UNKNOWN INDICATION
     Dosage: 1 DF
     Dates: start: 20100115

REACTIONS (2)
  - PETECHIAE [None]
  - SENSORY DISTURBANCE [None]
